FAERS Safety Report 10770822 (Version 1)
Quarter: 2015Q1

REPORT INFORMATION
  Report Type: Spontaneous
  Country: US (occurrence: None)
  Receive Date: 20150206
  Receipt Date: 20150206
  Transmission Date: 20150721
  Serious: No
  Sender: FDA-Public Use
  Company Number: HYP201305-000019

PATIENT
  Age: 19 Year
  Sex: Female
  Weight: 54.43 kg

DRUGS (6)
  1. PREVACID [Concomitant]
     Active Substance: LANSOPRAZOLE
  2. L-CITRULLINE [Concomitant]
     Active Substance: CITRULLINE
  3. RAVICTI [Suspect]
     Active Substance: GLYCEROL PHENYLBUTYRATE
     Indication: UREA CYCLE ENZYME DEFICIENCY
     Route: 048
     Dates: start: 20130520
  4. CYCLINEX 2 (AMINO ACID) [Concomitant]
  5. POLYCOSE (GLUCOSE POLYMER) [Concomitant]
  6. CRYSELLE (NORGESTREL, ETHINYL ESTRADIOL) [Concomitant]

REACTIONS (6)
  - Retching [None]
  - Urine odour abnormal [None]
  - Skin odour abnormal [None]
  - Frequent bowel movements [None]
  - Abnormal faeces [None]
  - Lacrimation increased [None]

NARRATIVE: CASE EVENT DATE: 20130520
